FAERS Safety Report 4867388-9 (Version None)
Quarter: 2005Q4

REPORT INFORMATION
  Report Type: 
  Country: None (occurrence: None)
  Receive Date: 20051228
  Receipt Date: 20051005
  Transmission Date: 20060501
  Serious: Yes (Other)
  Sender: FDA-Public Use
  Company Number: JP-AVENTIS-200512889JP

PATIENT
  Sex: Female

DRUGS (4)
  1. LANTUS [Suspect]
  2. OPTIPEN (INSULIN PUMP) [Suspect]
  3. OPTICLIK (INSULIN INJECTION PEN) [Suspect]
  4. INSULIN NOS [Concomitant]

REACTIONS (2)
  - BLINDNESS UNILATERAL [None]
  - HYPOGLYCAEMIA [None]
